FAERS Safety Report 15041541 (Version 1)
Quarter: 2018Q2

REPORT INFORMATION
  Report Type: Spontaneous
  Country: BR (occurrence: BR)
  Receive Date: 20180621
  Receipt Date: 20180621
  Transmission Date: 20180711
  Serious: Yes (Other)
  Sender: FDA-Public Use
  Company Number: BR-BAUSCH-BL-2018-017191

PATIENT
  Age: 62 Year
  Sex: Male

DRUGS (3)
  1. CYLOCORT [Concomitant]
     Indication: PRODUCT USED FOR UNKNOWN INDICATION
  2. LACRILAX [Concomitant]
     Indication: PRODUCT USED FOR UNKNOWN INDICATION
  3. CICLOPIROX OLAMINE. [Suspect]
     Active Substance: CICLOPIROX OLAMINE
     Indication: FUNGAL INFECTION
     Route: 061
     Dates: start: 201806

REACTIONS (3)
  - Ocular hyperaemia [Not Recovered/Not Resolved]
  - Eye burns [Not Recovered/Not Resolved]
  - Medication error [Unknown]

NARRATIVE: CASE EVENT DATE: 20180607
